FAERS Safety Report 12394356 (Version 1)
Quarter: 2016Q2

REPORT INFORMATION
  Report Type: Spontaneous
  Country: US (occurrence: US)
  Receive Date: 20160523
  Receipt Date: 20160523
  Transmission Date: 20160815
  Serious: Yes (Other)
  Sender: FDA-Public Use
  Company Number: US-TEVA-660607USA

PATIENT
  Age: 42 Year
  Sex: Female

DRUGS (1)
  1. ZECUITY [Suspect]
     Active Substance: SUMATRIPTAN SUCCINATE
     Route: 062
     Dates: start: 20160508, end: 20160508

REACTIONS (8)
  - Application site pain [Unknown]
  - Application site burn [Unknown]
  - Inappropriate schedule of drug administration [Unknown]
  - Application site discolouration [Unknown]
  - Application site warmth [Unknown]
  - Application site erythema [Recovering/Resolving]
  - Application site paraesthesia [Unknown]
  - Product adhesion issue [Unknown]

NARRATIVE: CASE EVENT DATE: 20160508
